FAERS Safety Report 5420971-4 (Version None)
Quarter: 2007Q3

REPORT INFORMATION
  Report Type: 
  Country: None (occurrence: None)
  Receive Date: 20070821
  Receipt Date: 20070810
  Transmission Date: 20080115
  Serious: Yes (Other)
  Sender: FDA-Public Use
  Company Number: JP-MERCK-0707USA03187

PATIENT

DRUGS (8)
  1. PEPCID [Suspect]
     Indication: NASOPHARYNGITIS
     Route: 048
  2. ACETAMINOPHEN [Concomitant]
     Route: 048
  3. CEFCAPENE PIVOXIL HYDROCHLORIDE [Concomitant]
     Route: 048
  4. DEXTROMETHORPHAN [Concomitant]
     Route: 048
  5. HERBS (UNSPECIFIED) [Concomitant]
     Route: 048
  6. METOCLOPRAMIDE [Concomitant]
     Route: 048
  7. SENECA SNAKEROOT [Concomitant]
     Route: 048
  8. TRANEXAMIC ACID [Concomitant]
     Route: 048

REACTIONS (3)
  - APGAR SCORE LOW [None]
  - DRUG EXPOSURE DURING PREGNANCY [None]
  - FOETAL DISTRESS SYNDROME [None]
